FAERS Safety Report 7047075-1 (Version None)
Quarter: 2010Q4

REPORT INFORMATION
  Report Type: 
  Country: None (occurrence: None)
  Receive Date: 20101015
  Receipt Date: 20101006
  Transmission Date: 20110411
  Serious: Yes (Hospitalization)
  Sender: FDA-Public Use
  Company Number: FR-ASTRAZENECA-2010SE47521

PATIENT
  Age: 18879 Day
  Sex: Male

DRUGS (8)
  1. ZESTRIL [Suspect]
     Indication: HYPERTENSION
     Route: 048
     Dates: start: 20090923
  2. STAGID [Suspect]
     Indication: DIABETES MELLITUS
     Route: 048
     Dates: start: 20090923
  3. NEXIUM [Concomitant]
     Route: 048
  4. SYMBICORT [Concomitant]
     Dosage: 400/12 MICROG
     Route: 055
  5. VITAMIN B6 [Concomitant]
     Route: 048
  6. LEXOMIL [Concomitant]
     Route: 048
  7. SUBUTEX [Concomitant]
     Route: 048
  8. VENTOLIN [Concomitant]
     Route: 055

REACTIONS (3)
  - ABDOMINAL PAIN UPPER [None]
  - FACE OEDEMA [None]
  - OROPHARYNGEAL DISCOMFORT [None]
